FAERS Safety Report 11369877 (Version 1)
Quarter: 2015Q3

REPORT INFORMATION
  Report Type: Spontaneous
  Country: US (occurrence: US)
  Receive Date: 20150812
  Receipt Date: 20150812
  Transmission Date: 20151125
  Serious: Yes (Other)
  Sender: FDA-Public Use
  Company Number: US-JNJFOC-20150620999

PATIENT

DRUGS (6)
  1. VORINOSTAT [Suspect]
     Active Substance: VORINOSTAT
     Indication: NEUROBLASTOMA RECURRENT
     Dosage: 3 CYCLES COMPLETED
     Route: 065
  2. VORINOSTAT [Suspect]
     Active Substance: VORINOSTAT
     Indication: NEUROBLASTOMA
     Dosage: 3 CYCLES COMPLETED
     Route: 065
  3. BORTEZOMIB [Suspect]
     Active Substance: BORTEZOMIB
     Indication: NEUROBLASTOMA
     Dosage: FREQUENCY: 1 MG/M2 PER DOSE; 3 CYCLES COMPLETED
     Route: 065
  4. DOXORUBICIN HYDROCHLORIDE. [Suspect]
     Active Substance: DOXORUBICIN HYDROCHLORIDE
     Indication: NEUROBLASTOMA
     Dosage: FREQUENCY: 30 MG/M2 PER DOSE; 3 CYCLES COMPLETED.
     Route: 042
  5. DOXORUBICIN HYDROCHLORIDE. [Suspect]
     Active Substance: DOXORUBICIN HYDROCHLORIDE
     Indication: NEUROBLASTOMA RECURRENT
     Dosage: FREQUENCY: 30 MG/M2 PER DOSE; 3 CYCLES COMPLETED.
     Route: 042
  6. BORTEZOMIB [Suspect]
     Active Substance: BORTEZOMIB
     Indication: NEUROBLASTOMA RECURRENT
     Dosage: FREQUENCY: 1 MG/M2 PER DOSE; 3 CYCLES COMPLETED
     Route: 065

REACTIONS (6)
  - Aspartate aminotransferase increased [Unknown]
  - Thrombocytopenia [Unknown]
  - Product use issue [Unknown]
  - Alanine aminotransferase increased [Unknown]
  - Neutropenia [Unknown]
  - Leukopenia [Unknown]
